FAERS Safety Report 14498919 (Version 2)
Quarter: 2018Q1

REPORT INFORMATION
  Report Type: Spontaneous
  Country: DE (occurrence: DE)
  Receive Date: 20180207
  Receipt Date: 20180207
  Transmission Date: 20180509
  Serious: Yes (Life-Threatening)
  Sender: FDA-Public Use
  Company Number: PHHY2018DE020452

PATIENT
  Age: 56 Year
  Sex: Male
  Weight: 78 kg

DRUGS (14)
  1. PREDNISOLON [Suspect]
     Active Substance: PREDNISOLONE
     Dosage: 50 MG,
     Route: 048
     Dates: start: 20160928, end: 20161010
  2. PREDNISOLON [Suspect]
     Active Substance: PREDNISOLONE
     Dosage: 100 MG,
     Route: 048
     Dates: start: 20160928, end: 20161010
  3. PREDNISOLON [Suspect]
     Active Substance: PREDNISOLONE
     Dosage: 5 MG,
     Route: 048
     Dates: start: 20160928, end: 20161010
  4. PREDNISOLON [Suspect]
     Active Substance: PREDNISOLONE
     Dosage: 10 MG,
     Route: 048
     Dates: start: 20160928, end: 20161010
  5. PREDNISOLON [Suspect]
     Active Substance: PREDNISOLONE
     Dosage: 50 MG,
     Route: 048
     Dates: start: 20160928, end: 20161010
  6. PREDNISOLON [Suspect]
     Active Substance: PREDNISOLONE
     Dosage: 25 MG,
     Route: 048
     Dates: start: 20160928, end: 20161010
  7. PREDNISOLON [Suspect]
     Active Substance: PREDNISOLONE
     Dosage: 100 MG,
     Route: 048
     Dates: start: 20160928, end: 20161010
  8. PREDNISOLON [Suspect]
     Active Substance: PREDNISOLONE
     Dosage: 15 MG,
     Route: 048
     Dates: start: 20160928, end: 20161010
  9. PREDNISOLON [Suspect]
     Active Substance: PREDNISOLONE
     Indication: ANOSMIA
     Dosage: 150 MG,
     Route: 048
     Dates: start: 20160928, end: 20161010
  10. PREDNISOLON [Suspect]
     Active Substance: PREDNISOLONE
     Dosage: 25 MG,
     Route: 048
     Dates: start: 20160928, end: 20161010
  11. PREDNISOLON [Suspect]
     Active Substance: PREDNISOLONE
     Dosage: 15 MG,
     Route: 048
     Dates: start: 20160928, end: 20161010
  12. PREDNISOLON [Suspect]
     Active Substance: PREDNISOLONE
     Dosage: 15 MG,
     Route: 048
     Dates: start: 20160928, end: 20161010
  13. PREDNISOLON [Suspect]
     Active Substance: PREDNISOLONE
     Dosage: 10 MG,
     Route: 048
     Dates: start: 20160928, end: 20161010
  14. DYMISTA [Concomitant]
     Active Substance: AZELASTINE HYDROCHLORIDE\FLUTICASONE PROPIONATE
     Indication: ANOSMIA
     Dosage: 2X2 HUB
     Route: 045

REACTIONS (1)
  - Subarachnoid haemorrhage [Recovered/Resolved]

NARRATIVE: CASE EVENT DATE: 20161110
